FAERS Safety Report 5267840-0 (Version None)
Quarter: 2007Q1

REPORT INFORMATION
  Report Type: 
  Country: None (occurrence: None)
  Receive Date: 20070316
  Receipt Date: 20070307
  Transmission Date: 20070707
  Serious: Yes (Hospitalization)
  Sender: FDA-Public Use
  Company Number: FR-PFIZER INC-2007019303

PATIENT
  Age: 91 Year
  Sex: Female

DRUGS (6)
  1. ZOLOFT [Suspect]
     Dosage: TEXT:1 DF
     Route: 048
  2. ARICEPT [Suspect]
     Dosage: DAILY DOSE:5MG
     Route: 048
  3. MODOPAR [Suspect]
     Route: 048
  4. MODOPAR [Suspect]
     Route: 048
  5. MEMANTINE HCL [Suspect]
     Route: 048
  6. LORAZEPAM [Suspect]
     Route: 048

REACTIONS (1)
  - BALANCE DISORDER [None]
